FAERS Safety Report 6176680-X (Version None)
Quarter: 2009Q2

REPORT INFORMATION
  Report Type: 
  Country: None (occurrence: None)
  Receive Date: 20090501
  Receipt Date: 20090420
  Transmission Date: 20091009
  Serious: Yes (Disabling, Other)
  Sender: FDA-Public Use
  Company Number: US-PFIZER INC-2009183575

PATIENT
  Sex: Female
  Weight: 54.422 kg

DRUGS (1)
  1. RELPAX [Suspect]
     Indication: MIGRAINE
     Dosage: FREQUENCY: PRN,

REACTIONS (2)
  - DEPRESSION [None]
  - GENERALISED ANXIETY DISORDER [None]
